FAERS Safety Report 7783259-2 (Version None)
Quarter: 2011Q3

REPORT INFORMATION
  Report Type: 
  Country: None (occurrence: None)
  Receive Date: 20110928
  Receipt Date: 20110916
  Transmission Date: 20111222
  Serious: Yes (Life-Threatening, Hospitalization, Other)
  Sender: FDA-Public Use
  Company Number: US-JNJFOC-20110907571

PATIENT
  Sex: Male
  Weight: 97.52 kg

DRUGS (35)
  1. REMICADE [Suspect]
     Route: 042
     Dates: start: 20100514, end: 20101001
  2. NOVOLOG [Concomitant]
     Dosage: 100 UNIT/ML
     Route: 065
  3. LEVOTHYROXINE SODIUM [Concomitant]
     Dosage: 112 MCG. ON EMPTY STOMACH 1 HOUR PRIOR TO ANY OTHER MEDICATION AND 4 HOURS PRIOR TO ANY SUPPLEMENTS.
     Route: 065
  4. LABETALOL HCL [Concomitant]
     Route: 048
  5. PROSCAR [Concomitant]
     Route: 065
  6. FLOMAX [Concomitant]
     Route: 065
  7. UNSPECIFIED NEBULIZER [Concomitant]
     Route: 065
  8. DUONEB [Concomitant]
     Dosage: 0.5-2.5 (3) MG/ML SOLUTION, 1 VIAL
     Route: 065
  9. HYDROXYZINE HCL [Concomitant]
     Indication: PRURITUS
     Dosage: 1 OR 2 TABLETS TWO TIMES A DAY AS NECESSARY
     Route: 065
  10. MUCINEX [Concomitant]
     Route: 048
  11. ACETAMINOPHEN [Concomitant]
     Indication: PREMEDICATION
     Route: 065
     Dates: start: 20110914
  12. BENADRYL [Concomitant]
     Indication: PREMEDICATION
     Route: 042
     Dates: start: 20110914
  13. TESTOSTERONE [Concomitant]
     Dosage: 14 PELLETS IMPLANTED  INTO THE LEFT THIGH
     Route: 059
  14. SIMVASTATIN [Concomitant]
     Route: 048
  15. SULFASALAZINE [Concomitant]
     Dosage: 1/2 TABLET (250 MG) ONCE DAILY X 1 WEEK, THEN 1/2 TAB(250MG) TWICE A DAY X 1 WEEK,THEN 2 TABS BID
     Route: 048
  16. ULTRACET [Concomitant]
     Dosage: 37.5-325 MG TABLETS, ONE TO TWO TABLETS EVERY 6 HOURS AS NECESSARY
     Route: 065
  17. TESTOSTERONE [Concomitant]
     Dosage: 30 MG/ACT SOLUTION, ONE PUMP TO EACH ARMPIT DAILY 90MGS
     Route: 065
  18. NORTRIPTYLINE HCL [Concomitant]
     Dosage: 1 AT BEDTIME
     Route: 048
  19. MEDROL [Concomitant]
     Dosage: 2 CAPSULES TWICE DAILY
     Route: 048
  20. TOPIRAMATE [Concomitant]
     Route: 065
  21. ADVAIR DISKUS 100/50 [Concomitant]
     Dosage: 250-50 MCG/DOSE. 1 INHALATION EVERY 12 HOUR. RINSE MOUTH AFTER USE
     Route: 065
  22. VITAMIN D [Concomitant]
     Route: 065
  23. GABAPENTIN [Concomitant]
     Route: 065
  24. PROCRIT [Concomitant]
     Dosage: 40,000U SQ
     Route: 065
  25. REMICADE [Suspect]
     Indication: RHEUMATOID ARTHRITIS
     Route: 042
     Dates: start: 20110815, end: 20110914
  26. BUMEX [Concomitant]
     Route: 048
  27. ASPIRIN [Concomitant]
     Route: 048
  28. PREVACID [Concomitant]
     Dosage: SOLUTAB
     Route: 048
  29. LORTAB [Concomitant]
     Dosage: 5 5-500 MG TABLETS 1 PER ORAL THRICE DAILY AS NECESSARY
     Route: 048
  30. XOPENEX [Concomitant]
     Dosage: 45MCG/ACT AERO 2 PUFFS FOUR TIMES A DAY AS NECESSARY
     Route: 065
  31. OXYBUTYNIN [Concomitant]
     Route: 048
  32. ACETAMINOPHEN [Concomitant]
     Indication: PREMEDICATION
     Route: 048
     Dates: start: 20110914
  33. VIAGRA [Concomitant]
     Dosage: AS NECESSARY
     Route: 048
  34. MIRALAX [Concomitant]
     Dosage: 2-3 CAPFULS EVERY OTHER TO EVERY DAY AS NEEDED
     Route: 065
  35. ALL OTHER THERAPEUTICS [Concomitant]
     Route: 065

REACTIONS (4)
  - RESPIRATORY ARREST [None]
  - CARDIAC ARREST [None]
  - PRURITUS [None]
  - INFUSION RELATED REACTION [None]
